FAERS Safety Report 18960832 (Version 1)
Quarter: 2021Q1

REPORT INFORMATION
  Report Type: Spontaneous
  Country: US (occurrence: US)
  Receive Date: 20210302
  Receipt Date: 20210302
  Transmission Date: 20210420
  Serious: No
  Sender: FDA-Public Use
  Company Number: US-NOVOPROD-732428

PATIENT
  Age: 42 Year
  Sex: Female
  Weight: 95.25 kg

DRUGS (1)
  1. SAXENDA [Suspect]
     Active Substance: LIRAGLUTIDE
     Indication: WEIGHT CONTROL
     Dosage: 3 MG, QD
     Route: 058
     Dates: start: 20170206, end: 20200527

REACTIONS (2)
  - Injection site reaction [Not Recovered/Not Resolved]
  - Lipohypertrophy [Not Recovered/Not Resolved]

NARRATIVE: CASE EVENT DATE: 20190901
